FAERS Safety Report 8530645-9 (Version None)
Quarter: 2012Q3

REPORT INFORMATION
  Report Type: 
  Country: None (occurrence: None)
  Receive Date: 20120723
  Receipt Date: 20100210
  Transmission Date: 20120928
  Serious: Yes (Death, Other)
  Sender: FDA-Public Use
  Company Number: US-BAYER-200840615NA

PATIENT
  Sex: Female
  Weight: 65.455 kg

DRUGS (48)
  1. GADOLINIUM ZEOLITE [Suspect]
     Dosage: PER PATIENT
     Dates: start: 20050101, end: 20050101
  2. PROTONIX [Concomitant]
     Route: 048
  3. INSULIN HUMAN [Concomitant]
     Route: 058
  4. LIPITOR [Concomitant]
     Route: 048
  5. GLIPIZIDE [Concomitant]
  6. AMLODIPINE [Concomitant]
     Route: 048
  7. COZAAR [Concomitant]
  8. PHENERGAN HCL [Concomitant]
     Route: 054
  9. INFED [Concomitant]
     Dosage: 100 MG
     Route: 042
     Dates: start: 20010801
  10. NEURONTIN [Concomitant]
     Route: 048
     Dates: start: 20010801
  11. MORPHINE SULFATE [Concomitant]
     Dosage: Q2H
  12. IPRATROPIUM BROMIDE [Concomitant]
     Route: 055
  13. ATORVASTATIN [Concomitant]
     Route: 048
  14. BISACODYL [Concomitant]
     Route: 054
  15. METOPROLOL SUCCINATE [Concomitant]
     Route: 048
  16. EPOGEN [Concomitant]
     Dosage: 4000 UNITS ON ^SPECIAL DAYS^
     Route: 058
     Dates: start: 20010821
  17. EPOGEN [Concomitant]
     Route: 042
     Dates: start: 20031108
  18. ZEMPLAR [Concomitant]
     Route: 042
     Dates: start: 20031108
  19. PHOSLO [Concomitant]
     Dosage: 667 MG 3 TABS WITH MEALS
     Route: 048
     Dates: start: 20031108
  20. OMNISCAN [Suspect]
     Indication: NUCLEAR MAGNETIC RESONANCE IMAGING
  21. COUMADIN [Concomitant]
  22. NEPHROVITE [VIT C,VIT H,B5,B12,B9,B3,B6,B2,B1 HCL] [Concomitant]
     Dosage: 1 CAPLET
     Route: 048
  23. VICODIN [Concomitant]
  24. OPTIMARK [Suspect]
     Indication: NUCLEAR MAGNETIC RESONANCE IMAGING
  25. GADOLINIUM ZEOLITE [Suspect]
     Dosage: APPROXIMATELY 10-15ML; MAGNEVIST OR MULTIHANCE
     Dates: start: 20060629, end: 20060629
  26. RENAGEL [Concomitant]
     Dosage: 3200 MG WITH MEALS
     Route: 048
     Dates: start: 20060901
  27. ACETAMINOPHEN [Concomitant]
     Dosage: Q4H PRN
     Route: 048
  28. ALPRAZOLAM [Concomitant]
     Dosage: 1 MG TU. TH, SAT
     Route: 048
  29. VENOFER [Concomitant]
  30. MULTIHANCE [Suspect]
     Indication: NUCLEAR MAGNETIC RESONANCE IMAGING
  31. ENOXAPARIN [Concomitant]
  32. ARANESP [Concomitant]
     Dosage: 60 MCG ONE TIME WEEKLY
     Route: 058
  33. MAGNEVIST [Suspect]
     Indication: IMAGING PROCEDURE
  34. OXYGEN [Concomitant]
  35. TEMAZEPAM [Concomitant]
     Dosage: QHS
  36. SENSIPAR [Concomitant]
     Route: 048
  37. DOXAZOSIN MESYLATE [Concomitant]
  38. MUCOMYST [Concomitant]
     Route: 055
  39. ALBUMIN (HUMAN) [Concomitant]
     Dosage: WITH DIALYSIS
  40. TEMAZEPAM [Concomitant]
     Dosage: QHS
  41. CATAPRES [Concomitant]
  42. FERRLECIT [Concomitant]
     Route: 042
     Dates: start: 20031108
  43. MAGNEVIST [Suspect]
     Indication: NUCLEAR MAGNETIC RESONANCE IMAGING
  44. ACETAMINOPHEN W/ CODEINE [Concomitant]
     Dosage: 1-2 TABS Q4H
     Route: 048
  45. MANNITOL [Concomitant]
     Dosage: WITH DIALYSIS
  46. CARISOPRODOL [Concomitant]
     Dosage: 1 TAB 4 X DAY
  47. CALCIUM CARBONATE [Concomitant]
     Dosage: 1000 MG - 2 TABS- Q8H CHEW
     Route: 048
  48. ALBUTEROL [Concomitant]
     Route: 055
     Dates: start: 20060928

REACTIONS (30)
  - NEPHROGENIC SYSTEMIC FIBROSIS [None]
  - EMOTIONAL DISTRESS [None]
  - JOINT RANGE OF MOTION DECREASED [None]
  - PAIN [None]
  - ANXIETY [None]
  - PRURITUS [None]
  - POST INFLAMMATORY PIGMENTATION CHANGE [None]
  - JOINT CONTRACTURE [None]
  - PIGMENTATION DISORDER [None]
  - PAIN IN EXTREMITY [None]
  - MUSCULAR WEAKNESS [None]
  - MOBILITY DECREASED [None]
  - SKIN TURGOR DECREASED [None]
  - SKIN EXFOLIATION [None]
  - BURNING SENSATION [None]
  - GENERAL PHYSICAL HEALTH DETERIORATION [None]
  - DEFORMITY [None]
  - DRY SKIN [None]
  - HYPOAESTHESIA [None]
  - SCAR [None]
  - LIVEDO RETICULARIS [None]
  - ASTHENIA [None]
  - FIBROSIS [None]
  - SKIN DISCOLOURATION [None]
  - OEDEMA PERIPHERAL [None]
  - JOINT STIFFNESS [None]
  - SKIN TIGHTNESS [None]
  - SKIN HYPERTROPHY [None]
  - HYPERAESTHESIA [None]
  - GAIT DISTURBANCE [None]
